FAERS Safety Report 10393029 (Version 1)
Quarter: 2014Q3

REPORT INFORMATION
  Report Type: Spontaneous
  Country: US (occurrence: US)
  Receive Date: 20140819
  Receipt Date: 20140819
  Transmission Date: 20150326
  Serious: No
  Sender: FDA-Public Use
  Company Number: US-009507513-1408USA004967

PATIENT
  Age: 43 Year
  Sex: Female

DRUGS (14)
  1. COPEGUS [Suspect]
     Active Substance: RIBAVIRIN
     Indication: HEPATITIS C
     Dosage: 300 MG, BID
     Route: 048
     Dates: start: 201206
  2. ZOLOFT [Concomitant]
     Active Substance: SERTRALINE HYDROCHLORIDE
     Dosage: UNK
  3. PEGASYS [Suspect]
     Active Substance: PEGINTERFERON ALFA-2A
     Indication: HEPATITIS C
     Dosage: DAILY DOSE: 180 MICROGRAM
     Route: 058
     Dates: start: 201206
  4. KLOR-CON [Concomitant]
     Active Substance: POTASSIUM CHLORIDE
     Dosage: UNK
  5. AMBIEN [Concomitant]
     Active Substance: ZOLPIDEM TARTRATE
     Dosage: UNK
  6. COPEGUS [Suspect]
     Active Substance: RIBAVIRIN
     Dosage: 300 MG, BID
     Route: 048
     Dates: start: 20130502
  7. VICTRELIS [Suspect]
     Active Substance: BOCEPREVIR
     Indication: HEPATITIS C
     Dosage: UNK
     Route: 065
     Dates: start: 201206
  8. PYRIDIUM [Concomitant]
     Active Substance: PHENAZOPYRIDINE
     Dosage: UNK
  9. VITAMINS (UNSPECIFIED) [Concomitant]
     Active Substance: VITAMINS
     Dosage: UNK
  10. COPEGUS [Suspect]
     Active Substance: RIBAVIRIN
     Dosage: 600 MG, BID
     Route: 048
     Dates: start: 20120717, end: 20120720
  11. PHENERGAN [Concomitant]
     Active Substance: PROMETHAZINE HYDROCHLORIDE
     Dosage: UNK
  12. HYDROCODONE [Concomitant]
     Active Substance: HYDROCODONE
     Dosage: UNK
  13. COPEGUS [Suspect]
     Active Substance: RIBAVIRIN
     Dosage: 600 MG, BID
     Route: 048
     Dates: start: 20120721
  14. INCIVEK [Suspect]
     Active Substance: TELAPREVIR
     Indication: HEPATITIS C
     Dosage: UNK
     Route: 065

REACTIONS (14)
  - Injection site rash [Unknown]
  - Rash papular [Unknown]
  - Nephrolithiasis [Unknown]
  - Rash macular [Unknown]
  - Nasal congestion [Unknown]
  - Pruritus [Unknown]
  - Thrombocytopenia [Unknown]
  - Asthenia [Unknown]
  - Myalgia [Unknown]
  - Anaemia [Unknown]
  - Nausea [Unknown]
  - Decreased appetite [Unknown]
  - Hypokalaemia [Unknown]
  - Fatigue [Unknown]

NARRATIVE: CASE EVENT DATE: 2012
